FAERS Safety Report 6343220-1 (Version None)
Quarter: 2009Q3

REPORT INFORMATION
  Report Type: 
  Country: None (occurrence: None)
  Receive Date: 20090821
  Receipt Date: 20090511
  Transmission Date: 20100115
  Serious: No
  Sender: FDA-Public Use
  Company Number: 8046136

PATIENT
  Age: 23 Year
  Sex: Female
  Weight: 45.5 kg

DRUGS (3)
  1. CIMZIA [Suspect]
     Indication: CROHN'S DISEASE
     Dosage: 400 MG 1/2W SC
     Route: 058
     Dates: start: 20090413
  2. PENTASA [Concomitant]
  3. ZYRTEC [Concomitant]

REACTIONS (8)
  - ABDOMINAL PAIN [None]
  - CONSTIPATION [None]
  - DIARRHOEA [None]
  - INJECTION SITE PRURITUS [None]
  - MUSCLE SPASMS [None]
  - MYALGIA [None]
  - THROAT IRRITATION [None]
  - VULVOVAGINAL MYCOTIC INFECTION [None]
